FAERS Safety Report 16155631 (Version 1)
Quarter: 2019Q2

REPORT INFORMATION
  Report Type: Spontaneous
  Country: GB (occurrence: GB)
  Receive Date: 20190404
  Receipt Date: 20190404
  Transmission Date: 20190711
  Serious: Yes (Hospitalization, Other)
  Sender: FDA-Public Use
  Company Number: GB-AUROBINDO-AUR-APL-2019-017623

PATIENT

DRUGS (5)
  1. ERELZI [Suspect]
     Active Substance: ETANERCEPT-SZZS
     Dosage: 50 MG, QW, PRE-FILLED SYRINGE
     Route: 058
     Dates: start: 20181020
  2. ERELZI [Suspect]
     Active Substance: ETANERCEPT-SZZS
     Indication: ANKYLOSING SPONDYLITIS
     Dosage: 50 MG, QW, PRE-FILLED SYRINGE
     Route: 058
     Dates: start: 201803
  3. ERELZI [Suspect]
     Active Substance: ETANERCEPT-SZZS
     Dosage: 50 MG, QW, PRE-FILLED SYRINGE
     Route: 058
     Dates: start: 20190205
  4. COCODAMOL [Suspect]
     Active Substance: ACETAMINOPHEN\CODEINE PHOSPHATE
     Indication: PAIN
     Dosage: UNK
     Route: 065
  5. TRAMADOL. [Suspect]
     Active Substance: TRAMADOL
     Indication: PAIN
     Dosage: UNK
     Route: 065

REACTIONS (14)
  - Sepsis [Recovered/Resolved]
  - Arthralgia [Unknown]
  - Heart rate decreased [Unknown]
  - Pain [Recovered/Resolved]
  - Mobility decreased [Recovered/Resolved]
  - Hypersomnia [Unknown]
  - Feeling cold [Unknown]
  - Chills [Unknown]
  - Atrial flutter [Unknown]
  - Dizziness [Unknown]
  - Joint swelling [Unknown]
  - Somnolence [Unknown]
  - Device related infection [Unknown]
  - Decreased appetite [Unknown]
